FAERS Safety Report 16590501 (Version 2)
Quarter: 2019Q3

REPORT INFORMATION
  Report Type: Spontaneous
  Country: TW (occurrence: TW)
  Receive Date: 20190718
  Receipt Date: 20190829
  Transmission Date: 20191004
  Serious: Yes (Life-Threatening, Hospitalization, Other)
  Sender: FDA-Public Use
  Company Number: PHHY2019TW165152

PATIENT
  Age: 50 Year
  Sex: Male

DRUGS (4)
  1. DEXAMETHASONE. [Suspect]
     Active Substance: DEXAMETHASONE
     Indication: HYPERSENSITIVITY PNEUMONITIS
     Dosage: 4 MG, TID
     Route: 048
     Dates: start: 20180602, end: 20180619
  2. METHYLPREDNISOLONE. [Suspect]
     Active Substance: METHYLPREDNISOLONE
     Indication: HYPERSENSITIVITY PNEUMONITIS
     Dosage: 40 MG, BID
     Route: 065
     Dates: start: 20180619, end: 20180623
  3. HYDROCORTISONE. [Suspect]
     Active Substance: HYDROCORTISONE
     Indication: HYPERSENSITIVITY PNEUMONITIS
     Dosage: 100 MG, Q8H
     Route: 065
     Dates: start: 20180528, end: 20180601
  4. DEXAMETHASONE. [Suspect]
     Active Substance: DEXAMETHASONE
     Dosage: 4 MG, TID
     Route: 048
     Dates: start: 20180624, end: 20180702

REACTIONS (5)
  - Vomiting [Unknown]
  - Pneumatosis intestinalis [Recovering/Resolving]
  - Product use in unapproved indication [Unknown]
  - Pneumoretroperitoneum [Recovering/Resolving]
  - Abdominal distension [Unknown]
